FAERS Safety Report 20966343 (Version 1)
Quarter: 2022Q2

REPORT INFORMATION
  Report Type: Spontaneous
  Country: US (occurrence: None)
  Receive Date: 20220615
  Receipt Date: 20220615
  Transmission Date: 20220721
  Serious: No
  Sender: FDA-Public Use
  Company Number: None

PATIENT
  Age: 65 Year
  Sex: Male
  Weight: 52.16 kg

DRUGS (10)
  1. CAPECITABINE [Suspect]
     Active Substance: CAPECITABINE
     Indication: Gastric cancer
     Dosage: FREQUENCY : TWICE A DAY;?
     Route: 048
     Dates: start: 202201
  2. ACETAMINOPHEN [Concomitant]
     Active Substance: ACETAMINOPHEN
  3. AMANTADINE [Concomitant]
     Active Substance: AMANTADINE
  4. ASPIRIN [Concomitant]
     Active Substance: ASPIRIN
  5. ATORVASTATIN [Concomitant]
     Active Substance: ATORVASTATIN
  6. CLARITIN [Concomitant]
     Active Substance: LORATADINE
  7. FLUOXETINE [Concomitant]
     Active Substance: FLUOXETINE HYDROCHLORIDE
  8. OXYBUTYNIN [Concomitant]
     Active Substance: OXYBUTYNIN
  9. PEPCID [Concomitant]
     Active Substance: FAMOTIDINE
  10. POLYSACCHARIDE [Concomitant]

REACTIONS (2)
  - Disease progression [None]
  - Therapy interrupted [None]
